FAERS Safety Report 7574418-2 (Version None)
Quarter: 2011Q2

REPORT INFORMATION
  Report Type: 
  Country: None (occurrence: None)
  Receive Date: 20110627
  Receipt Date: 20110524
  Transmission Date: 20111010
  Serious: No
  Sender: FDA-Public Use
  Company Number: US-BAYER-2011-046643

PATIENT
  Age: 40 Year
  Sex: Female
  Weight: 84 kg

DRUGS (1)
  1. ALEVE (CAPLET) [Suspect]
     Indication: BACK PAIN
     Dosage: 880 MG, UNK
     Route: 048
     Dates: start: 20110524

REACTIONS (10)
  - EYE PRURITUS [None]
  - SNEEZING [None]
  - FEELING ABNORMAL [None]
  - PARAESTHESIA ORAL [None]
  - THROAT IRRITATION [None]
  - FLUSHING [None]
  - HYPOAESTHESIA [None]
  - PRURITUS [None]
  - DYSGEUSIA [None]
  - HYPERSENSITIVITY [None]
